FAERS Safety Report 21562373 (Version 2)
Quarter: 2022Q4

REPORT INFORMATION
  Report Type: Spontaneous
  Country: US (occurrence: US)
  Receive Date: 20221107
  Receipt Date: 20221107
  Transmission Date: 20230113
  Serious: No
  Sender: FDA-Public Use
  Company Number: US-GALDERMA-US2022007421

PATIENT

DRUGS (2)
  1. METRONIDAZOLE [Suspect]
     Active Substance: METRONIDAZOLE
     Indication: Rosacea
     Dosage: 1 DOSAGE FORM, ONCE
     Route: 061
     Dates: start: 2021, end: 2022
  2. EPIPEN [Concomitant]
     Active Substance: EPINEPHRINE
     Indication: Blood cholesterol
     Dosage: 75 MILLIGRAM, EVERY 2 WEEKS
     Route: 065

REACTIONS (2)
  - Rosacea [Unknown]
  - Drug ineffective [Unknown]

NARRATIVE: CASE EVENT DATE: 20220101
